FAERS Safety Report 15593393 (Version 1)
Quarter: 2018Q4

REPORT INFORMATION
  Report Type: Spontaneous
  Country: GB (occurrence: GB)
  Receive Date: 20181107
  Receipt Date: 20181107
  Transmission Date: 20190205
  Serious: Yes (Other)
  Sender: FDA-Public Use
  Company Number: GB-TEVA-2018-GB-971994

PATIENT
  Age: 18 Year
  Sex: Female

DRUGS (1)
  1. CIPROFLOXACIN. [Suspect]
     Active Substance: CIPROFLOXACIN
     Indication: KIDNEY INFECTION
     Route: 065

REACTIONS (8)
  - Muscle spasms [Recovered/Resolved]
  - Tremor [Recovered/Resolved]
  - Pain [Recovered/Resolved]
  - Back pain [Recovered/Resolved]
  - Pain in extremity [Recovered/Resolved]
  - Paraesthesia [Recovered/Resolved]
  - Documented hypersensitivity to administered product [Recovered/Resolved]
  - Asthenia [Recovered/Resolved]
